FAERS Safety Report 9869369 (Version 3)
Quarter: 2014Q1

REPORT INFORMATION
  Report Type: Spontaneous
  Country: US (occurrence: US)
  Receive Date: 20140205
  Receipt Date: 20140207
  Transmission Date: 20141002
  Serious: Yes (Hospitalization)
  Sender: FDA-Public Use
  Company Number: US-AMGEN-USASP2014003918

PATIENT
  Age: 38 Year
  Sex: Female
  Weight: 59 kg

DRUGS (4)
  1. ENBREL [Suspect]
     Indication: RHEUMATOID ARTHRITIS
     Dosage: 50 MG, QWK
     Route: 058
     Dates: start: 201312, end: 20140117
  2. ENBREL [Suspect]
     Indication: ARTHRITIS
  3. METHOTREXATE [Concomitant]
     Indication: ARTHRITIS
     Dosage: 0.7 ML, QWK
     Route: 058
     Dates: start: 201204
  4. PLAQUENIL                          /00072602/ [Concomitant]
     Indication: ARTHRITIS
     Dosage: 200 MG, BID
     Route: 048
     Dates: start: 200512

REACTIONS (6)
  - Rash generalised [Recovering/Resolving]
  - Injection site rash [Recovered/Resolved]
  - Injection site pain [Recovered/Resolved]
  - Injection site swelling [Recovered/Resolved]
  - Injection site reaction [Recovered/Resolved]
  - Injection site erythema [Recovered/Resolved]
